FAERS Safety Report 21370407 (Version 8)
Quarter: 2023Q4

REPORT INFORMATION
  Report Type: Spontaneous
  Country: JP (occurrence: JP)
  Receive Date: 20220923
  Receipt Date: 20231201
  Transmission Date: 20240110
  Serious: Yes (Hospitalization, Other)
  Sender: FDA-Public Use
  Company Number: JP-AMGEN-JPNSP2022157812

PATIENT
  Sex: Female

DRUGS (6)
  1. BLINCYTO [Suspect]
     Active Substance: BLINATUMOMAB
     Indication: B precursor type acute leukaemia
     Dosage: 15 MICROGRAM/SQ. METER, QD, CONTINUING, 28 DAYS, INFUSION
     Route: 042
     Dates: start: 20220901, end: 2022
  2. BLINCYTO [Suspect]
     Active Substance: BLINATUMOMAB
     Indication: Philadelphia chromosome positive
     Dosage: 3.3 MILLIGRAM, QH (FOR 72 HOURS)
     Route: 042
     Dates: start: 20221017
  3. BLINCYTO [Suspect]
     Active Substance: BLINATUMOMAB
     Dosage: 9 MICROGRAM, QD, CONTINUING 24 HOURS FOR 28 DAYS, INFUSION
     Route: 042
     Dates: start: 20230809, end: 20230809
  4. BLINCYTO [Suspect]
     Active Substance: BLINATUMOMAB
     Dosage: 9 MICROGRAM, QD, CONTINUING 24 HOURS FOR 28 DAYS, INFUSION
     Route: 042
     Dates: start: 2023
  5. DEXAMETHASONE [Suspect]
     Active Substance: DEXAMETHASONE
     Indication: Pyrexia
     Dosage: UNK
     Route: 065
  6. METHOTREXATE SODIUM [Suspect]
     Active Substance: METHOTREXATE SODIUM
     Indication: Hypoaesthesia
     Dosage: UNK
     Route: 037

REACTIONS (8)
  - Cytokine release syndrome [Unknown]
  - Central nervous system leukaemia [Not Recovered/Not Resolved]
  - Hypoaesthesia [Not Recovered/Not Resolved]
  - Neutrophil count decreased [Recovering/Resolving]
  - Full blood count decreased [Unknown]
  - Injection site haemorrhage [Recovered/Resolved]
  - Off label use [Unknown]
  - Coronavirus infection [Not Recovered/Not Resolved]

NARRATIVE: CASE EVENT DATE: 20220901
